FAERS Safety Report 15905811 (Version 1)
Quarter: 2019Q1

REPORT INFORMATION
  Report Type: Report from Study
  Country: DE (occurrence: DE)
  Receive Date: 20190204
  Receipt Date: 20190204
  Transmission Date: 20190417
  Serious: Yes (Hospitalization)
  Sender: FDA-Public Use
  Company Number: DE-BAYER-200410023BVD

PATIENT
  Age: 15 Year
  Sex: Male
  Weight: 50 kg

DRUGS (3)
  1. MEDITONSIN [Suspect]
     Active Substance: HOMEOPATHICS
     Indication: COUGH
     Route: 048
     Dates: start: 20020120
  2. ASPIRIN. [Suspect]
     Active Substance: ASPIRIN
     Indication: NASOPHARYNGITIS
     Route: 048
     Dates: start: 20020120
  3. PENICILLINE [BENZYLPENICILLIN] [Concomitant]
     Route: 048
     Dates: start: 20020122, end: 20020122

REACTIONS (6)
  - Stevens-Johnson syndrome [Recovered/Resolved]
  - Conjunctivitis [Recovered/Resolved]
  - Rash [Recovered/Resolved]
  - Lip swelling [Recovered/Resolved]
  - Stomatitis [Recovered/Resolved]
  - Erythema multiforme [Recovered/Resolved]

NARRATIVE: CASE EVENT DATE: 20020121
